FAERS Safety Report 7699478-X (Version None)
Quarter: 2011Q3

REPORT INFORMATION
  Report Type: 
  Country: None (occurrence: None)
  Receive Date: 20110820
  Receipt Date: 20110316
  Transmission Date: 20111222
  Serious: No
  Sender: FDA-Public Use
  Company Number: US-ALLERGAN-1103774US

PATIENT
  Age: 67 Year
  Sex: Female

DRUGS (3)
  1. SANCTURA XR [Suspect]
     Indication: INCONTINENCE
     Dosage: UNK
     Route: 048
     Dates: start: 20110201
  2. SANCTURA XR [Suspect]
     Dosage: UNK
     Route: 048
     Dates: start: 20110316
  3. VESICARE [Suspect]
     Indication: PRODUCT USED FOR UNKNOWN INDICATION
     Dosage: UNK

REACTIONS (1)
  - CONSTIPATION [None]
